FAERS Safety Report 15814253 (Version 1)
Quarter: 2019Q1

REPORT INFORMATION
  Report Type: Spontaneous
  Country: US (occurrence: US)
  Receive Date: 20190111
  Receipt Date: 20190111
  Transmission Date: 20190417
  Serious: No
  Sender: FDA-Public Use
  Company Number: US-JAZZ-2018-US-010608

PATIENT
  Sex: Female

DRUGS (5)
  1. PRIALT [Suspect]
     Active Substance: ZICONOTIDE ACETATE
     Dosage: 0.030 ?G, QH
     Route: 037
     Dates: start: 20180212
  2. PRIALT [Suspect]
     Active Substance: ZICONOTIDE ACETATE
     Dosage: INCREASED DOSE
     Route: 037
     Dates: start: 20180329
  3. HYDROMORPHONE [Suspect]
     Active Substance: HYDROMORPHONE
     Indication: PAIN
     Dosage: 0.288 MG, QH
     Route: 037
     Dates: start: 20180104, end: 2018
  4. HYDROMORPHONE [Suspect]
     Active Substance: HYDROMORPHONE
     Dosage: 0.288 MG, QH
     Route: 037
     Dates: start: 20180212
  5. PRIALT [Suspect]
     Active Substance: ZICONOTIDE ACETATE
     Indication: PAIN
     Dosage: 0.019 ?G, QH
     Route: 037
     Dates: start: 20180104, end: 2018

REACTIONS (1)
  - Therapeutic response decreased [Recovered/Resolved]

NARRATIVE: CASE EVENT DATE: 2018
